FAERS Safety Report 8448998-9 (Version None)
Quarter: 2012Q2

REPORT INFORMATION
  Report Type: 
  Country: None (occurrence: None)
  Receive Date: 20120619
  Receipt Date: 20120608
  Transmission Date: 20120825
  Serious: Yes (Other)
  Sender: FDA-Public Use
  Company Number: US-PFIZER INC-2012138647

PATIENT
  Sex: Female
  Weight: 108.84 kg

DRUGS (2)
  1. PRIMATENE MIST [Suspect]
     Indication: ASTHMA
     Dosage: 25/400 MG (TWO 12.5MG/200MG), 6X/DAY
     Route: 048
     Dates: start: 20120428, end: 20120429
  2. INSULIN [Concomitant]
     Dosage: UNK

REACTIONS (2)
  - ASTHMA [None]
  - DRUG INEFFECTIVE [None]
